FAERS Safety Report 7989714-4 (Version None)
Quarter: 2011Q4

REPORT INFORMATION
  Report Type: 
  Country: None (occurrence: None)
  Receive Date: 20111219
  Receipt Date: 20111206
  Transmission Date: 20120403
  Serious: Yes (Hospitalization, Other)
  Sender: FDA-Public Use
  Company Number: US-ELI_LILLY_AND_COMPANY-US201106008980

PATIENT
  Sex: Female
  Weight: 45.805 kg

DRUGS (10)
  1. IRON DEXTRAN [Concomitant]
     Dosage: UNK
  2. ATENOLOL [Concomitant]
  3. FORTEO [Suspect]
     Dosage: 20 UG, QD
  4. QUINAPRIL [Concomitant]
  5. OMEPRAZOLE [Concomitant]
  6. FORTEO [Suspect]
     Dosage: 20 UG, QD
  7. PRED FORTE [Concomitant]
  8. FORTEO [Suspect]
     Indication: OSTEOPOROSIS
     Dosage: 20 UG, QD
     Dates: start: 20110401
  9. FORTEO [Suspect]
     Dosage: 20 UG, QD
     Route: 065
  10. TRAMADOL HCL [Concomitant]

REACTIONS (16)
  - HYPOTENSION [None]
  - MASS [None]
  - COLITIS ISCHAEMIC [None]
  - CATARACT OPERATION [None]
  - VASCULAR INJURY [None]
  - CONSTIPATION [None]
  - MEMORY IMPAIRMENT [None]
  - FALL [None]
  - INJECTION SITE DISCOMFORT [None]
  - NERVE INJURY [None]
  - INJECTION SITE SWELLING [None]
  - BACK PAIN [None]
  - DYSSTASIA [None]
  - PAIN IN EXTREMITY [None]
  - GAIT DISTURBANCE [None]
  - INJECTION SITE HAEMATOMA [None]
